FAERS Safety Report 21670771 (Version 2)
Quarter: 2023Q1

REPORT INFORMATION
  Report Type: Report from Study
  Country: JP (occurrence: JP)
  Receive Date: 20221202
  Receipt Date: 20230109
  Transmission Date: 20230418
  Serious: Yes (Other)
  Sender: FDA-Public Use
  Company Number: JP-SAKK-2022SA487523AA

PATIENT
  Age: 80 Year
  Sex: Female

DRUGS (1)
  1. SUTIMLIMAB [Suspect]
     Active Substance: SUTIMLIMAB
     Indication: Cold type haemolytic anaemia
     Dosage: UNK
     Route: 041
     Dates: start: 20220914

REACTIONS (2)
  - Haemolysis [Recovering/Resolving]
  - Chromaturia [Recovering/Resolving]
